FAERS Safety Report 4739700-2 (Version None)
Quarter: 2005Q3

REPORT INFORMATION
  Report Type: 
  Country: None (occurrence: None)
  Receive Date: 20050810
  Receipt Date: 20050428
  Transmission Date: 20060218
  Serious: No
  Sender: FDA-Public Use
  Company Number: US-GLAXOSMITHKLINE-A0556194A

PATIENT
  Age: 45 Year
  Sex: Male

DRUGS (1)
  1. PAXIL [Suspect]
     Dosage: 15MG PER DAY
     Route: 048
     Dates: start: 20030101

REACTIONS (2)
  - AMNESIA [None]
  - DISTURBANCE IN ATTENTION [None]
